FAERS Safety Report 8280050-8 (Version None)
Quarter: 2012Q2

REPORT INFORMATION
  Report Type: 
  Country: None (occurrence: None)
  Receive Date: 20120412
  Receipt Date: 20110822
  Transmission Date: 20120825
  Serious: No
  Sender: FDA-Public Use
  Company Number: US-ASTRAZENECA-2011SE50663

PATIENT
  Sex: Female

DRUGS (2)
  1. CRESTOR [Concomitant]
  2. NEXIUM [Suspect]
     Route: 065

REACTIONS (1)
  - DIABETES MELLITUS [None]
